FAERS Safety Report 4954666-8 (Version None)
Quarter: 2006Q1

REPORT INFORMATION
  Report Type: 
  Country: None (occurrence: None)
  Receive Date: 20060327
  Receipt Date: 20060317
  Transmission Date: 20060701
  Serious: Yes (Hospitalization)
  Sender: FDA-Public Use
  Company Number: US-AMGEN-US171794

PATIENT
  Age: 64 Year
  Sex: Male

DRUGS (4)
  1. ARANESP [Suspect]
     Indication: ANAEMIA
     Route: 058
     Dates: start: 20050401, end: 20060301
  2. DAPSONE [Suspect]
     Dates: start: 20040101, end: 20060308
  3. IMURAN [Suspect]
     Dates: start: 20040101, end: 20060308
  4. TACROLIMUS [Concomitant]
     Dates: start: 20040101

REACTIONS (8)
  - ANAEMIA [None]
  - DYSPNOEA [None]
  - ERYTHROPOIESIS ABNORMAL [None]
  - LUNG TRANSPLANT [None]
  - LYMPHOPENIA [None]
  - NORMOCHROMIC NORMOCYTIC ANAEMIA [None]
  - SHIFT TO THE LEFT [None]
  - THERAPEUTIC RESPONSE DECREASED [None]
